FAERS Safety Report 9127244 (Version 1)
Quarter: 2013Q1

REPORT INFORMATION
  Report Type: Spontaneous
  Country: US (occurrence: US)
  Receive Date: 20130228
  Receipt Date: 20130228
  Transmission Date: 20140127
  Serious: No
  Sender: FDA-Public Use
  Company Number: US-GLAXOSMITHKLINE-A0963536A

PATIENT
  Age: 52 Year
  Sex: Female

DRUGS (5)
  1. LAMICTAL [Suspect]
     Indication: BIPOLAR DISORDER
     Dosage: 100MG PER DAY
     Route: 048
  2. TYLENOL [Concomitant]
  3. XANAX [Concomitant]
  4. WATER PILL [Concomitant]
  5. PRENATAL VITAMIN [Concomitant]

REACTIONS (6)
  - Urticaria [Unknown]
  - Rash [Unknown]
  - Pruritus [Unknown]
  - Skin exfoliation [Unknown]
  - Skin swelling [Unknown]
  - Drug administration error [Unknown]
